FAERS Safety Report 8840132 (Version 1)
Quarter: 2012Q4

REPORT INFORMATION
  Report Type: 
  Country: US (occurrence: US)
  Receive Date: 20121015
  Receipt Date: 20121015
  Transmission Date: 20130627
  Serious: No
  Sender: FDA-Public Use
  Company Number: US-PFIZER INC-2012255085

PATIENT
  Age: 46 Year
  Sex: Male
  Weight: 61.22 kg

DRUGS (2)
  1. CHANTIX [Suspect]
     Indication: SMOKING CESSATION THERAPY
     Dosage: 0.5 mg, daily
     Dates: start: 20121009, end: 201210
  2. CHANTIX [Suspect]
     Dosage: 0.5 mg, 2x/day
     Dates: start: 20121011

REACTIONS (2)
  - Palpitations [Recovered/Resolved]
  - Sleep disorder [Unknown]
